FAERS Safety Report 7215589-7 (Version None)
Quarter: 2011Q1

REPORT INFORMATION
  Report Type: 
  Country: None (occurrence: None)
  Receive Date: 20110104
  Receipt Date: 20110104
  Transmission Date: 20110831
  Serious: Yes (Life-Threatening)
  Sender: FDA-Public Use
  Company Number: None

PATIENT
  Age: 81 Year
  Sex: Female
  Weight: 57.6068 kg

DRUGS (1)
  1. DONEPEZIL HCL [Suspect]
     Indication: DEMENTIA
     Dosage: INITIAL DOSE ONLY ONCE
     Dates: start: 20101231, end: 20101231

REACTIONS (15)
  - TACHYPNOEA [None]
  - FAECAL INCONTINENCE [None]
  - FATIGUE [None]
  - DYSPNOEA [None]
  - RECTAL HAEMORRHAGE [None]
  - DISORIENTATION [None]
  - BALANCE DISORDER [None]
  - DEPRESSED MOOD [None]
  - DEHYDRATION [None]
  - CONFUSIONAL STATE [None]
  - HYPERHIDROSIS [None]
  - ACTIVITIES OF DAILY LIVING IMPAIRED [None]
  - DYSSTASIA [None]
  - AMNESIA [None]
  - DYSARTHRIA [None]
